FAERS Safety Report 24238873 (Version 1)
Quarter: 2024Q3

REPORT INFORMATION
  Report Type: Spontaneous
  Country: US (occurrence: None)
  Receive Date: 20240822
  Receipt Date: 20240822
  Transmission Date: 20241017
  Serious: Yes (Hospitalization)
  Sender: Public
  Company Number: None

PATIENT
  Sex: Female

DRUGS (3)
  1. TADALAFIL [Suspect]
     Active Substance: TADALAFIL
     Indication: Pulmonary hypertension
     Dosage: OTHER QUANTITY : TAKE 2 TABLETS;?FREQUENCY : DAILY;?
     Route: 048
     Dates: start: 20190425
  2. METOPROLOL [Concomitant]
     Active Substance: METOPROLOL
  3. TREMFYA [Concomitant]
     Active Substance: GUSELKUMAB

REACTIONS (1)
  - Hospitalisation [None]
